FAERS Safety Report 6407388-0 (Version None)
Quarter: 2009Q4

REPORT INFORMATION
  Report Type: 
  Country: None (occurrence: None)
  Receive Date: 20091020
  Receipt Date: 20091009
  Transmission Date: 20100525
  Serious: Yes (Other)
  Sender: FDA-Public Use
  Company Number: GR-JNJFOC-20091004089

PATIENT
  Sex: Male

DRUGS (1)
  1. REMICADE [Suspect]
     Indication: CROHN'S DISEASE
     Dosage: 6 YEARS OF TREATMENT
     Route: 042
     Dates: start: 20030101

REACTIONS (1)
  - AMYOTROPHIC LATERAL SCLEROSIS [None]
